FAERS Safety Report 4600487-5 (Version None)
Quarter: 2005Q1

REPORT INFORMATION
  Report Type: 
  Country: None (occurrence: None)
  Receive Date: 20050304
  Receipt Date: 20050218
  Transmission Date: 20050727
  Serious: Yes (Hospitalization)
  Sender: FDA-Public Use
  Company Number: Q05-004

PATIENT
  Age: 64 Year
  Sex: Male

DRUGS (5)
  1. QUADRAMET [Suspect]
     Indication: METASTASES TO BONE
  2. CASODEX [Concomitant]
  3. ZOLADEX [Concomitant]
  4. MARINOL [Concomitant]
  5. PHENERGAN [Concomitant]

REACTIONS (10)
  - ALANINE AMINOTRANSFERASE INCREASED [None]
  - ANAEMIA [None]
  - ASPARTATE AMINOTRANSFERASE INCREASED [None]
  - CACHEXIA [None]
  - HAEMATURIA [None]
  - HYPOXIA [None]
  - JAUNDICE [None]
  - NAUSEA [None]
  - THROMBOCYTOPENIA [None]
  - VOMITING [None]
